FAERS Safety Report 4541162-5 (Version None)
Quarter: 2004Q4

REPORT INFORMATION
  Report Type: 
  Country: None (occurrence: None)
  Receive Date: 20041227
  Receipt Date: 20041214
  Transmission Date: 20050328
  Serious: Yes (Hospitalization, Other)
  Sender: FDA-Public Use
  Company Number: HQWYE734802DEC04

PATIENT
  Age: 2 Year
  Sex: Male

DRUGS (1)
  1. CHILDREN'S ADVIL [Suspect]
     Dosage: 3 DOSES PER KILOGRAM IN TOTAL ORAL
     Route: 048
     Dates: start: 20040801, end: 20040801

REACTIONS (4)
  - ACQUIRED PYLORIC STENOSIS [None]
  - ANOREXIA [None]
  - GASTRIC ULCER [None]
  - VOMITING [None]
